FAERS Safety Report 6982475-7 (Version None)
Quarter: 2010Q3

REPORT INFORMATION
  Report Type: 
  Country: None (occurrence: None)
  Receive Date: 20100914
  Receipt Date: 20100207
  Transmission Date: 20110219
  Serious: Yes (Other)
  Sender: FDA-Public Use
  Company Number: US-PFIZER INC-2010016411

PATIENT
  Age: 45 Year
  Sex: Female

DRUGS (2)
  1. LYRICA [Suspect]
     Indication: FIBROMYALGIA
     Dosage: 75 UNK, 2X/DAY
  2. LYRICA [Suspect]
     Dosage: 75 UNK, 3X/DAY

REACTIONS (1)
  - HALLUCINATION, VISUAL [None]
